FAERS Safety Report 7576118-1 (Version None)
Quarter: 2011Q2

REPORT INFORMATION
  Report Type: 
  Country: None (occurrence: None)
  Receive Date: 20110623
  Receipt Date: 20110623
  Transmission Date: 20111010
  Serious: No
  Sender: FDA-Public Use
  Company Number: None

PATIENT
  Sex: Female

DRUGS (1)
  1. TIMOLOL MALEATE [Suspect]
     Dosage: 1 DROP LEFT EYE BID
     Route: 047
     Dates: start: 20110401

REACTIONS (1)
  - CONJUNCTIVITIS ALLERGIC [None]
